FAERS Safety Report 8074607-7 (Version None)
Quarter: 2012Q1

REPORT INFORMATION
  Report Type: 
  Country: None (occurrence: None)
  Receive Date: 20120126
  Receipt Date: 20120123
  Transmission Date: 20120608
  Serious: Yes (Other)
  Sender: FDA-Public Use
  Company Number: US-PFIZER INC-2012018590

PATIENT
  Sex: Female

DRUGS (2)
  1. ULTRAM [Suspect]
     Dosage: UNK
  2. LIPITOR [Suspect]
     Indication: BLOOD CHOLESTEROL INCREASED
     Dosage: 20 MG, 1X/DAY
     Route: 048
     Dates: start: 20020101

REACTIONS (4)
  - VERTIGO [None]
  - FRACTURED SACRUM [None]
  - INTERVERTEBRAL DISC PROTRUSION [None]
  - HYPERSENSITIVITY [None]
